FAERS Safety Report 19591646 (Version 2)
Quarter: 2021Q3

REPORT INFORMATION
  Report Type: Report from Study
  Country: US (occurrence: US)
  Receive Date: 20210721
  Receipt Date: 20210927
  Transmission Date: 20211014
  Serious: Yes (Other)
  Sender: FDA-Public Use
  Company Number: US-BAYER-2021-173480

PATIENT
  Age: 44 Year
  Sex: Male

DRUGS (1)
  1. STIVARGA [Suspect]
     Active Substance: REGORAFENIB
     Dosage: DAILY DOSE 120 MG  DAYS 1 THROUGH 21 EVERY 28 DAYS
     Route: 048
     Dates: start: 20210625

REACTIONS (5)
  - Blood glucose fluctuation [Not Recovered/Not Resolved]
  - Off label use [None]
  - Gingival bleeding [Not Recovered/Not Resolved]
  - Hypertension [Not Recovered/Not Resolved]
  - Fatigue [Not Recovered/Not Resolved]

NARRATIVE: CASE EVENT DATE: 20210625
